FAERS Safety Report 9465457 (Version 1)
Quarter: 2013Q3

REPORT INFORMATION
  Report Type: Spontaneous
  Country: AU (occurrence: AU)
  Receive Date: 20130820
  Receipt Date: 20130820
  Transmission Date: 20140515
  Serious: Yes (Life-Threatening)
  Sender: FDA-Public Use
  Company Number: AU-009507513-1308AUS007911

PATIENT
  Age: 39 Year
  Sex: Female
  Weight: 134 kg

DRUGS (3)
  1. SAPHRIS [Suspect]
     Dosage: UNK
     Dates: start: 20130606, end: 20130612
  2. FLUVOXAMINE MALEATE [Concomitant]
     Dosage: UNK
  3. LITHIUM CARBONATE [Concomitant]
     Dosage: UNK
     Dates: start: 20120315

REACTIONS (1)
  - Fluid retention [Recovered/Resolved]
